FAERS Safety Report 22088568 (Version 1)
Quarter: 2023Q1

REPORT INFORMATION
  Report Type: Spontaneous
  Country: US (occurrence: US)
  Receive Date: 20230313
  Receipt Date: 20230313
  Transmission Date: 20230418
  Serious: No
  Sender: FDA-Public Use
  Company Number: US-PADAGIS-2023PAD00211

PATIENT

DRUGS (3)
  1. TRIAMCINOLONE ACETONIDE [Suspect]
     Active Substance: TRIAMCINOLONE ACETONIDE
     Indication: Eczema
     Dosage: UNK
     Route: 065
     Dates: start: 2018
  2. TRIAMCINOLONE ACETONIDE [Suspect]
     Active Substance: TRIAMCINOLONE ACETONIDE
     Indication: Eczema
     Dosage: UNK
     Route: 065
  3. TACROLIMUS [Suspect]
     Active Substance: TACROLIMUS
     Indication: Eczema
     Dosage: UNK
     Route: 065
     Dates: start: 2018

REACTIONS (6)
  - Skin wrinkling [Unknown]
  - Pruritus [Unknown]
  - Skin burning sensation [Unknown]
  - Expired product administered [Unknown]
  - Product administered at inappropriate site [Unknown]
  - Product packaging confusion [Unknown]

NARRATIVE: CASE EVENT DATE: 20230215
